FAERS Safety Report 8998185 (Version 6)
Quarter: 2014Q1

REPORT INFORMATION
  Report Type: Spontaneous
  Country: US (occurrence: US)
  Receive Date: 20130104
  Receipt Date: 20140214
  Transmission Date: 20141002
  Serious: Yes (Hospitalization, Disabling, Other)
  Sender: FDA-Public Use
  Company Number: US-009507513-1301USA000383

PATIENT
  Sex: Female
  Weight: 63.49 kg

DRUGS (6)
  1. XANAX [Concomitant]
     Indication: ANXIETY
     Dosage: .05 MG, BID
     Dates: start: 2002
  2. NUVARING [Suspect]
     Indication: CONTRACEPTION
     Dosage: UNK, QM
     Route: 067
     Dates: start: 2008, end: 20100707
  3. NUVARING [Suspect]
     Dosage: UNK
     Route: 067
     Dates: start: 20060831
  4. CIPRO [Concomitant]
     Indication: COLITIS ULCERATIVE
     Dosage: UNK
     Dates: start: 2003
  5. FLAGYL [Concomitant]
     Indication: COLITIS ULCERATIVE
     Dosage: UNK
     Dates: start: 2006
  6. PAXIL [Concomitant]
     Indication: ANXIETY
     Dosage: 40 MG, QD
     Dates: start: 2002

REACTIONS (3)
  - Thrombosis [Unknown]
  - Muscle spasms [Unknown]
  - Pulmonary embolism [Unknown]
